FAERS Safety Report 8480100-X (Version None)
Quarter: 2012Q2

REPORT INFORMATION
  Report Type: 
  Country: None (occurrence: None)
  Receive Date: 20120629
  Receipt Date: 20120620
  Transmission Date: 20120825
  Serious: Yes (Hospitalization)
  Sender: FDA-Public Use
  Company Number: US-ELI_LILLY_AND_COMPANY-US201202003283

PATIENT
  Sex: Female

DRUGS (4)
  1. FORTEO [Suspect]
     Dosage: 20 UG, QD
     Route: 065
     Dates: start: 20120118
  2. LUCENTIS [Concomitant]
  3. FORTEO [Suspect]
     Indication: OSTEOPOROSIS
     Dosage: 20 UG, QD
     Route: 065
     Dates: start: 20120118
  4. FORTEO [Suspect]
     Dosage: 20 UG, QD
     Dates: start: 20120118

REACTIONS (10)
  - SPINAL DISORDER [None]
  - PAIN [None]
  - COUGH [None]
  - MUSCULOSKELETAL DISCOMFORT [None]
  - EYE DISORDER [None]
  - CHRONIC OBSTRUCTIVE PULMONARY DISEASE [None]
  - VISUAL IMPAIRMENT [None]
  - UMBILICAL HERNIA [None]
  - DYSPNOEA [None]
  - CONTUSION [None]
